FAERS Safety Report 14323215 (Version 1)
Quarter: 2017Q4

REPORT INFORMATION
  Report Type: Spontaneous
  Country: FR (occurrence: FR)
  Receive Date: 20171226
  Receipt Date: 20171226
  Transmission Date: 20180321
  Serious: Yes (Other)
  Sender: FDA-Public Use
  Company Number: FR-MERCK KGAA-2037708

PATIENT
  Sex: Female

DRUGS (2)
  1. NOVOTHYROX [Suspect]
     Active Substance: LEVOTHYROXINE SODIUM
     Indication: PRODUCT USED FOR UNKNOWN INDICATION
     Dates: start: 201710
  2. NOVOTHYROX [Concomitant]
     Active Substance: LEVOTHYROXINE SODIUM

REACTIONS (14)
  - Impaired work ability [None]
  - Overdose [None]
  - Psychomotor hyperactivity [None]
  - Mania [None]
  - Blood thyroid stimulating hormone decreased [None]
  - Disturbance in attention [None]
  - Muscular weakness [None]
  - Feeling abnormal [None]
  - Hyperthyroidism [None]
  - Anxiety [None]
  - Palpitations [None]
  - Insomnia [None]
  - Mood swings [None]
  - Blood thyroid stimulating hormone increased [None]

NARRATIVE: CASE EVENT DATE: 2017
